FAERS Safety Report 24054004 (Version 2)
Quarter: 2024Q3

REPORT INFORMATION
  Report Type: Spontaneous
  Country: US (occurrence: None)
  Receive Date: 20240705
  Receipt Date: 20240719
  Transmission Date: 20241017
  Serious: Yes (Other)
  Sender: ASTRAZENECA
  Company Number: 2024A150734

PATIENT
  Age: 74 Year
  Sex: Female

DRUGS (3)
  1. SYMBICORT [Suspect]
     Active Substance: BUDESONIDE\FORMOTEROL FUMARATE DIHYDRATE
     Dosage: 160, 1 INHALATION, TWICE DAILY FOR SEVEN YEARS
     Route: 055
     Dates: end: 2021
  2. SYMBICORT [Suspect]
     Active Substance: BUDESONIDE\FORMOTEROL FUMARATE DIHYDRATE
     Dosage: 160 UG, UNKNOWN UNKNOWN
     Route: 055
     Dates: start: 2021
  3. BREZTRI [Suspect]
     Active Substance: BUDESONIDE\FORMOTEROL\GLYCOPYRROLATE
     Route: 055
     Dates: start: 2021, end: 2021

REACTIONS (17)
  - Pneumonia [Unknown]
  - Heart rate increased [Unknown]
  - Lung disorder [Unknown]
  - Suffocation feeling [Unknown]
  - Therapeutic product effect decreased [Unknown]
  - Oxygen saturation abnormal [Unknown]
  - Insomnia [Unknown]
  - Photophobia [Unknown]
  - Condition aggravated [Unknown]
  - Dyspnoea [Unknown]
  - Oropharyngeal pain [Unknown]
  - Asthenia [Unknown]
  - Respiratory tract congestion [Unknown]
  - Paranoia [Unknown]
  - Sleep disorder due to general medical condition, insomnia type [Unknown]
  - Increased bronchial secretion [Unknown]
  - Product use issue [Unknown]

NARRATIVE: CASE EVENT DATE: 20210101
